FAERS Safety Report 21307869 (Version 1)
Quarter: 2022Q3

REPORT INFORMATION
  Report Type: Spontaneous
  Country: US (occurrence: US)
  Receive Date: 20220908
  Receipt Date: 20220908
  Transmission Date: 20221026
  Serious: No
  Sender: FDA-Public Use
  Company Number: US-BAYER-2022A121044

PATIENT
  Sex: Male

DRUGS (1)
  1. ALEVE [Suspect]
     Active Substance: NAPROXEN SODIUM
     Dosage: 2 DF, QD
     Route: 048
     Dates: start: 20220824, end: 20220825

REACTIONS (2)
  - Blood glucose increased [Recovering/Resolving]
  - Prescribed overdose [Recovering/Resolving]

NARRATIVE: CASE EVENT DATE: 20220824
